FAERS Safety Report 5277195-3 (Version None)
Quarter: 2007Q1

REPORT INFORMATION
  Report Type: 
  Country: None (occurrence: None)
  Receive Date: 20070327
  Receipt Date: 20070316
  Transmission Date: 20070707
  Serious: Yes (Death)
  Sender: FDA-Public Use
  Company Number: GB-JNJFOC-20060402457

PATIENT
  Age: 23 Year
  Sex: Male
  Weight: 106 kg

DRUGS (7)
  1. CYCLIZINE [Suspect]
  2. FENTANYL [Suspect]
     Indication: ANALGESIC EFFECT
     Route: 062
     Dates: start: 20051225
  3. PIRITON [Suspect]
  4. TEMAZEPAM [Suspect]
  5. DIAZEPAM [Concomitant]
     Dates: start: 20051028
  6. ORAMORPH SR [Concomitant]
     Dosage: 5ML FOUR TIMES PER DAY
     Dates: start: 20051223
  7. PREDFOAM [Concomitant]
     Dates: start: 20041223

REACTIONS (15)
  - AMNESIA [None]
  - ANXIETY [None]
  - CHILLS [None]
  - DIZZINESS [None]
  - DRUG TOXICITY [None]
  - DRY MOUTH [None]
  - DYSARTHRIA [None]
  - DYSPNOEA [None]
  - HEADACHE [None]
  - HYPERSENSITIVITY [None]
  - MUSCULOSKELETAL STIFFNESS [None]
  - PHOTOPHOBIA [None]
  - PNEUMONIA [None]
  - PRURITUS [None]
  - VISION BLURRED [None]
